FAERS Safety Report 4875585-1 (Version None)
Quarter: 2006Q1

REPORT INFORMATION
  Report Type: 
  Country: None (occurrence: None)
  Receive Date: 20060109
  Receipt Date: 20051226
  Transmission Date: 20060701
  Serious: Yes (Death, Life-Threatening)
  Sender: FDA-Public Use
  Company Number: JP-ROCHE-429933

PATIENT
  Age: 7 Year
  Sex: Male
  Weight: 19 kg

DRUGS (10)
  1. TAMIFLU [Suspect]
     Route: 048
     Dates: start: 20051215, end: 20051215
  2. SAWACILLIN [Concomitant]
     Route: 048
     Dates: start: 20051214, end: 20051215
  3. HOKUNALIN [Concomitant]
     Dosage: DIVIDED INTO 3 DOSES
     Route: 048
     Dates: start: 20051214
  4. ASVERIN [Concomitant]
     Route: 048
     Dates: start: 20051214
  5. MUCOSOLVAN [Concomitant]
     Dosage: DRUG CLARIFIFED AS 'MUCOSOLVAN DS FOR PEDIATRIC' DIVIDED INTO 3 DOSES
     Route: 048
     Dates: start: 20051214
  6. ANHIBA [Concomitant]
     Dosage: ADMINISTERED UPTO ABOUT TWICE A DAY
     Route: 054
     Dates: start: 20051214
  7. BIOFERMIN R [Concomitant]
     Dosage: DIVIDED INTO 3 DOSES
     Route: 048
     Dates: start: 20051215
  8. NAUZELIN [Concomitant]
     Route: 054
     Dates: start: 20051215
  9. LOPEMIN [Concomitant]
     Route: 048
     Dates: start: 20051215
  10. BIOFERMIN [Concomitant]
     Route: 048
     Dates: start: 20051215

REACTIONS (4)
  - CARDIO-RESPIRATORY ARREST [None]
  - DYSPNOEA [None]
  - GASTROINTESTINAL HAEMORRHAGE [None]
  - SUDDEN DEATH [None]
